FAERS Safety Report 13103951 (Version 2)
Quarter: 2017Q2

REPORT INFORMATION
  Report Type: Spontaneous
  Country: US (occurrence: US)
  Receive Date: 20170111
  Receipt Date: 20170531
  Transmission Date: 20170830
  Serious: Yes (Other)
  Sender: FDA-Public Use
  Company Number: US-ASTRAZENECA-2017SE01419

PATIENT
  Age: 660 Month
  Sex: Male

DRUGS (14)
  1. NEXIUM [Suspect]
     Active Substance: ESOMEPRAZOLE MAGNESIUM
     Route: 048
     Dates: start: 20131016
  2. ATORVASTATIN [Concomitant]
     Active Substance: ATORVASTATIN
     Dosage: TAKE ONE TABLET BY MOUTH EVERYDAY.
     Route: 048
     Dates: start: 20150430
  3. NEXIUM [Suspect]
     Active Substance: ESOMEPRAZOLE MAGNESIUM
     Route: 048
     Dates: start: 20140515
  4. GABAPENTIN. [Concomitant]
     Active Substance: GABAPENTIN
     Dosage: TAKE ONE CAPSULE EVERY MORNING AND AT LUNCH AND TAKE 3 CAPSULES AT BEDTIME.
     Route: 048
     Dates: start: 20150421
  5. DICLOXACILLIN [Concomitant]
     Active Substance: DICLOXACILLIN
     Route: 048
     Dates: start: 20151208
  6. LUNESTA [Concomitant]
     Active Substance: ESZOPICLONE
     Dosage: TAKE ONE TABLET BY MOUTH IMMEDIATLY BEFORE BEDTIME AS NEEDED.
     Route: 048
     Dates: start: 20150430
  7. OXYCODONE [Concomitant]
     Active Substance: OXYCODONE
     Route: 048
     Dates: start: 20151009
  8. AMBIEN [Concomitant]
     Active Substance: ZOLPIDEM TARTRATE
     Route: 048
     Dates: start: 20151208
  9. AMLODIPINE BENAZ [Concomitant]
     Dosage: 10/20 MG TAKE ONE CAPSULE BY MOUTH EVERYDAY.
     Route: 048
     Dates: start: 20150421
  10. TRAMADOL. [Concomitant]
     Active Substance: TRAMADOL
     Dosage: TAKE 2 TABLETS BY MOUTH IN THE MORNING AND AT NIGHT AS NEEDED.
     Route: 048
     Dates: start: 20150623
  11. NEXIUM [Suspect]
     Active Substance: ESOMEPRAZOLE MAGNESIUM
     Route: 048
     Dates: start: 2013, end: 2016
  12. METOPROLOL SUCCINATE. [Concomitant]
     Active Substance: METOPROLOL SUCCINATE
     Dosage: TAKE ONE TABLET BY MOUTH EVERYDAY.
     Route: 048
     Dates: start: 20150422
  13. HYDROCHLOROTHIAZIDE. [Concomitant]
     Active Substance: HYDROCHLOROTHIAZIDE
     Dosage: TAKE ONE TABLET BY MOUTH EVERYDAY.
     Route: 048
     Dates: start: 20150422
  14. AMLODIPINE BESYLATE. [Concomitant]
     Active Substance: AMLODIPINE BESYLATE
     Route: 048
     Dates: start: 20140515

REACTIONS (2)
  - Chronic kidney disease [Unknown]
  - End stage renal disease [Unknown]

NARRATIVE: CASE EVENT DATE: 201405
